FAERS Safety Report 6752282-9 (Version None)
Quarter: 2010Q2

REPORT INFORMATION
  Report Type: 
  Country: None (occurrence: None)
  Receive Date: 20100602
  Receipt Date: 20100519
  Transmission Date: 20101027
  Serious: Yes (Other)
  Sender: FDA-Public Use
  Company Number: PHHY2010BR33040

PATIENT
  Sex: Female

DRUGS (2)
  1. RASILEZ HCT [Suspect]
     Indication: HYPERTENSION
     Dosage: 1 DF, QD
     Route: 048
     Dates: start: 20100513
  2. RASILEZ HCT [Suspect]
     Dosage: 150/12.5MG, HALF TABLET DAILY
     Dates: start: 20100518

REACTIONS (7)
  - BLOOD PRESSURE DECREASED [None]
  - CHEST DISCOMFORT [None]
  - DIARRHOEA [None]
  - DIZZINESS [None]
  - FEELING ABNORMAL [None]
  - NAUSEA [None]
  - SYNCOPE [None]
